FAERS Safety Report 5942262-5 (Version None)
Quarter: 2008Q4

REPORT INFORMATION
  Report Type: 
  Country: None (occurrence: None)
  Receive Date: 20081105
  Receipt Date: 20081027
  Transmission Date: 20090506
  Serious: Yes (Other)
  Sender: FDA-Public Use
  Company Number: US-AMGEN-QUU315680

PATIENT
  Sex: Female

DRUGS (6)
  1. NEULASTA [Suspect]
     Indication: CHEMOTHERAPY
     Route: 065
  2. NEXIUM [Concomitant]
  3. UNSPECIFIED VITAMINS [Concomitant]
  4. CYTOXAN [Concomitant]
  5. ADRIAMYCIN PFS [Concomitant]
  6. TAXOTERE [Concomitant]

REACTIONS (4)
  - CHEST DISCOMFORT [None]
  - CHEST PAIN [None]
  - COUGH DECREASED [None]
  - DYSPNOEA [None]
